FAERS Safety Report 9699928 (Version 1)
Quarter: 2013Q4

REPORT INFORMATION
  Report Type: Report from Study
  Country: CH (occurrence: CH)
  Receive Date: 20131121
  Receipt Date: 20131121
  Transmission Date: 20140711
  Serious: Yes (Hospitalization)
  Sender: FDA-Public Use
  Company Number: CH-ROCHE-1306564

PATIENT
  Age: 74 Year
  Sex: Female

DRUGS (7)
  1. RITUXIMAB [Suspect]
     Indication: B-CELL LYMPHOMA
     Dosage: DAILY DOSE, DATE OF LAST DOSE PRIOR TO SAE:08OCT/2013
     Route: 042
     Dates: start: 20131008
  2. BENDAMUSTINE [Suspect]
     Indication: B-CELL LYMPHOMA
     Dosage: DAILY DOSE, DATE OF LAST DOSE PRIOR TO SAE:09/OCT/2013
     Route: 042
     Dates: start: 20131008
  3. LENALIDOMIDE [Suspect]
     Indication: B-CELL LYMPHOMA
     Dosage: DAILY DOSE, DATE OF LAST DOSE PRIOR TO SAE:28/OCT/2013.
     Route: 048
     Dates: start: 20131008
  4. ZOFRAN [Concomitant]
     Dosage: DAILY DOSE
     Route: 042
     Dates: start: 20131008, end: 20131009
  5. SOLU-MEDROL [Concomitant]
     Route: 042
     Dates: start: 20131008, end: 20131009
  6. TAVEGYL [Concomitant]
     Route: 042
     Dates: start: 20131008, end: 20131008
  7. DAFALGAN [Concomitant]
     Route: 048
     Dates: start: 20131008

REACTIONS (1)
  - Neutropenic colitis [Recovered/Resolved]
